FAERS Safety Report 14363467 (Version 3)
Quarter: 2018Q1

REPORT INFORMATION
  Report Type: Report from Study
  Country: IE (occurrence: IE)
  Receive Date: 20180108
  Receipt Date: 20180220
  Transmission Date: 20180509
  Serious: Yes (Other)
  Sender: FDA-Public Use
  Company Number: IE-JNJFOC-20180105424

PATIENT
  Age: 59 Year
  Sex: Female

DRUGS (15)
  1. CARDURA [Concomitant]
     Active Substance: DOXAZOSIN MESYLATE
     Route: 050
  2. COZAAR [Concomitant]
     Active Substance: LOSARTAN POTASSIUM
     Route: 050
  3. PALEXIA [Concomitant]
     Active Substance: TAPENTADOL HYDROCHLORIDE
     Route: 050
  4. TRAMADOL HYDROCHLORIDE. [Concomitant]
     Active Substance: TRAMADOL HYDROCHLORIDE
     Route: 050
  5. STELARA [Suspect]
     Active Substance: USTEKINUMAB
     Indication: PSORIASIS
     Route: 058
     Dates: start: 20180103
  6. DELTACORTRIL [Concomitant]
     Active Substance: PREDNISOLONE
     Route: 050
  7. XANAX [Concomitant]
     Active Substance: ALPRAZOLAM
     Route: 050
  8. DOXYCYCLINE. [Concomitant]
     Active Substance: DOXYCYCLINE
     Route: 050
  9. LYRICA [Concomitant]
     Active Substance: PREGABALIN
     Route: 050
  10. ZIMOVANE [Concomitant]
     Active Substance: ZOPICLONE
     Route: 050
  11. PIRITON [Concomitant]
     Active Substance: CHLORPHENIRAMINE MALEATE
     Route: 050
  12. SINGULAIR [Concomitant]
     Active Substance: MONTELUKAST SODIUM
     Route: 050
  13. CALCICHEW [Concomitant]
     Active Substance: CALCIUM CARBONATE
     Route: 050
  14. NEXIUM [Concomitant]
     Active Substance: ESOMEPRAZOLE MAGNESIUM
     Route: 050
  15. IVABRADINE [Concomitant]
     Active Substance: IVABRADINE
     Route: 050

REACTIONS (3)
  - Lower respiratory tract infection [Not Recovered/Not Resolved]
  - Blood urine present [Unknown]
  - Vomiting [Recovered/Resolved]

NARRATIVE: CASE EVENT DATE: 2018
